FAERS Safety Report 22223347 (Version 1)
Quarter: 2023Q2

REPORT INFORMATION
  Report Type: Spontaneous
  Country: US (occurrence: None)
  Receive Date: 20230416
  Receipt Date: 20230416
  Transmission Date: 20230722
  Serious: No
  Sender: FDA-Public Use
  Company Number: None

PATIENT
  Age: 66 Year
  Sex: Female
  Weight: 117.03 kg

DRUGS (18)
  1. KISQALI [Suspect]
     Active Substance: RIBOCICLIB
     Indication: Bone cancer
     Dosage: FREQUENCY : DAILY;?
     Route: 048
     Dates: start: 202212
  2. ALBUTEROL [Concomitant]
  3. BIOTIN [Concomitant]
     Active Substance: BIOTIN
  4. BUPROPION [Concomitant]
     Active Substance: BUPROPION
  5. FEBUXOSTAT [Concomitant]
  6. FLUOCINONIDE [Concomitant]
  7. HYDROCHLOROTHIAZIDE [Concomitant]
  8. IBUPROFEN [Concomitant]
  9. LETROZOLE [Concomitant]
  10. LEVOTHYROXINE [Concomitant]
  11. METOPROLOL [Concomitant]
     Active Substance: METOPROLOL
  12. MONTELUKAST [Concomitant]
  13. ROSUVASTATIN [Concomitant]
  14. TRELEGY ELLIPTA [Concomitant]
  15. TRETINOIN [Concomitant]
     Active Substance: TRETINOIN
  16. TRIAMETERENE [Concomitant]
  17. TUMERIC [Concomitant]
  18. VITAMIN E [Concomitant]

REACTIONS (2)
  - Hepatic enzyme increased [None]
  - Therapy interrupted [None]

NARRATIVE: CASE EVENT DATE: 20230404
